FAERS Safety Report 6235522-4 (Version None)
Quarter: 2009Q2

REPORT INFORMATION
  Report Type: 
  Country: None (occurrence: None)
  Receive Date: 20090618
  Receipt Date: 20080804
  Transmission Date: 20091009
  Serious: No
  Sender: FDA-Public Use
  Company Number: US-ASTRAZENECA-2008UW15858

PATIENT
  Age: 49 Year
  Sex: Female

DRUGS (2)
  1. RHINOCORT [Suspect]
     Indication: SINUS DISORDER
     Dosage: TWO PUFFS IN EACH NOSTRIL
     Route: 045
  2. RHINOCORT [Suspect]
     Dosage: ONE SPRAY IN EACH NOSTRIL
     Route: 045

REACTIONS (7)
  - CRYING [None]
  - DEPRESSION [None]
  - DYSPHONIA [None]
  - EPISTAXIS [None]
  - HEADACHE [None]
  - ILL-DEFINED DISORDER [None]
  - MIGRAINE [None]
